FAERS Safety Report 7817407-2 (Version None)
Quarter: 2011Q4

REPORT INFORMATION
  Report Type: 
  Country: None (occurrence: None)
  Receive Date: 20111012
  Receipt Date: 20111005
  Transmission Date: 20120403
  Serious: Yes (Hospitalization)
  Sender: FDA-Public Use
  Company Number: WAES 1110KOR00010

PATIENT
  Sex: Female

DRUGS (5)
  1. JANUVIA [Suspect]
     Indication: TYPE 2 DIABETES MELLITUS
     Dosage: 100 MG/DAILY, PO
     Route: 048
     Dates: start: 20101116
  2. CLOPIDOGREL [Concomitant]
  3. CEFUROXIME [Concomitant]
  4. AMMONIUM CHLORIDE (+) CHLORPHENIRAMINE M [Concomitant]
  5. ERDOSTEINE [Concomitant]

REACTIONS (1)
  - PNEUMONIA [None]
